FAERS Safety Report 19002582 (Version 1)
Quarter: 2021Q1

REPORT INFORMATION
  Report Type: Spontaneous
  Country: US (occurrence: US)
  Receive Date: 20210312
  Receipt Date: 20210312
  Transmission Date: 20210420
  Serious: No
  Sender: FDA-Public Use
  Company Number: US-WARNER CHILCOTT-2015-001344

PATIENT
  Age: 70 Year
  Sex: Female

DRUGS (1)
  1. ESTRACE [Suspect]
     Active Substance: ESTRADIOL
     Indication: VULVOVAGINAL DRYNESS
     Dosage: 1 G THREE TIMES WEEKLY
     Route: 067
     Dates: start: 2010

REACTIONS (6)
  - Vulvovaginal injury [Recovered/Resolved]
  - Device issue [Unknown]
  - Vulvovaginal pain [Recovered/Resolved]
  - Vulvovaginal discomfort [Unknown]
  - Vulvovaginal pruritus [Recovered/Resolved]
  - Vulvovaginal burning sensation [Recovered/Resolved]

NARRATIVE: CASE EVENT DATE: 2015
